FAERS Safety Report 25355940 (Version 5)
Quarter: 2025Q4

REPORT INFORMATION
  Report Type: Spontaneous
  Country: JP (occurrence: JP)
  Receive Date: 20250525
  Receipt Date: 20251214
  Transmission Date: 20260118
  Serious: Yes (Hospitalization, Other)
  Sender: GILEAD
  Company Number: JP-GILEAD-2025-0713777

PATIENT
  Age: 54 Year
  Sex: Female
  Weight: 70 kg

DRUGS (12)
  1. TRODELVY [Suspect]
     Active Substance: SACITUZUMAB GOVITECAN-HZIY
     Indication: Triple negative breast cancer
     Dosage: 700 MG
     Route: 041
     Dates: start: 20250501, end: 2025
  2. TRODELVY [Suspect]
     Active Substance: SACITUZUMAB GOVITECAN-HZIY
     Dosage: 2 DOSE LEVEL REDUCTION
     Route: 041
  3. ROSUVASTATIN [Concomitant]
     Active Substance: ROSUVASTATIN
  4. NILVADIPINE [Concomitant]
     Active Substance: NILVADIPINE
  5. AZILSARTAN KAMEDOXOMIL [Concomitant]
     Active Substance: AZILSARTAN KAMEDOXOMIL
  6. LANSOPRAZOLE [Concomitant]
     Active Substance: LANSOPRAZOLE
  7. ALOXI [Concomitant]
     Active Substance: PALONOSETRON HYDROCHLORIDE
  8. DEXAMETHASONE [Concomitant]
     Active Substance: DEXAMETHASONE
  9. POLARAMINE [Concomitant]
     Active Substance: DEXCHLORPHENIRAMINE MALEATE
  10. FAMOTIDINE [Concomitant]
     Active Substance: FAMOTIDINE
  11. ACETAMINOPHEN [Concomitant]
     Active Substance: ACETAMINOPHEN
     Route: 048
  12. APREPITANT [Concomitant]
     Active Substance: APREPITANT
     Route: 048

REACTIONS (13)
  - Loss of consciousness [Recovered/Resolved]
  - Loss of consciousness [Unknown]
  - Fall [Recovered/Resolved]
  - Fall [Unknown]
  - Laryngeal oedema [Unknown]
  - Metastases to skin [Unknown]
  - Febrile neutropenia [Recovering/Resolving]
  - Metastases to central nervous system [Unknown]
  - Pharyngeal oedema [Unknown]
  - Pleural effusion [Unknown]
  - Dizziness [Recovering/Resolving]
  - Dizziness [Recovering/Resolving]
  - Nausea [Not Recovered/Not Resolved]

NARRATIVE: CASE EVENT DATE: 20250101
